FAERS Safety Report 7302201-1 (Version None)
Quarter: 2011Q1

REPORT INFORMATION
  Report Type: 
  Country: None (occurrence: None)
  Receive Date: 20110218
  Receipt Date: 20110208
  Transmission Date: 20110831
  Serious: Yes (Hospitalization, Other)
  Sender: FDA-Public Use
  Company Number: PHEH2009US14037

PATIENT
  Sex: Female

DRUGS (13)
  1. RANITIDINE [Concomitant]
  2. VITAMIN E [Concomitant]
     Dosage: 400 UNITS, QD
  3. SINGULAIR [Concomitant]
  4. ASPIRIN [Concomitant]
  5. SIMVASTATIN [Concomitant]
  6. ZOLPIDEM [Concomitant]
  7. POTASSIUM [Concomitant]
  8. RECLAST [Suspect]
     Dosage: UNK
     Dates: start: 20090301
  9. ATENOLOL [Concomitant]
  10. CALTRATE [Concomitant]
  11. BONIVA [Suspect]
     Dosage: ONCE YEARLY
     Route: 042
  12. CALCIUM WITH VITAMIN D [Concomitant]
  13. RECLAST [Suspect]
     Dosage: UNK
     Dates: start: 20080301

REACTIONS (16)
  - PAIN IN JAW [None]
  - ORAL INFECTION [None]
  - INSOMNIA [None]
  - TOOTHACHE [None]
  - DENTAL CARIES [None]
  - EATING DISORDER [None]
  - DRY MOUTH [None]
  - FALL [None]
  - ORAL PAIN [None]
  - EAR PAIN [None]
  - SPEECH DISORDER [None]
  - TOOTH DISORDER [None]
  - TOOTH INJURY [None]
  - ENAMEL ANOMALY [None]
  - IMPAIRED HEALING [None]
  - QUALITY OF LIFE DECREASED [None]
